FAERS Safety Report 5168349-5 (Version None)
Quarter: 2006Q4

REPORT INFORMATION
  Report Type: 
  Country: None (occurrence: None)
  Receive Date: 20061208
  Receipt Date: 20061127
  Transmission Date: 20070319
  Serious: Yes (Other)
  Sender: FDA-Public Use
  Company Number: GR-ROCHE-472625

PATIENT
  Age: 54 Year
  Sex: Male

DRUGS (2)
  1. TICLID [Suspect]
     Indication: ANGIOPLASTY
     Route: 048
     Dates: start: 20060615
  2. ASPIRIN [Concomitant]
     Dates: start: 20060615

REACTIONS (2)
  - DRUG INEFFECTIVE [None]
  - STENT OCCLUSION [None]
